FAERS Safety Report 6902043-2 (Version None)
Quarter: 2010Q3

REPORT INFORMATION
  Report Type: 
  Country: None (occurrence: None)
  Receive Date: 20100803
  Receipt Date: 20080408
  Transmission Date: 20110219
  Serious: No
  Sender: FDA-Public Use
  Company Number: US-PFIZER INC-2008031821

PATIENT
  Sex: Female
  Weight: 60.8 kg

DRUGS (5)
  1. LYRICA [Suspect]
     Indication: HERPES ZOSTER
     Route: 048
     Dates: start: 20080401, end: 20080407
  2. METOPROLOL [Concomitant]
     Route: 048
  3. PLAVIX [Concomitant]
     Indication: HYPERTENSION
     Route: 048
  4. VALIUM [Concomitant]
     Route: 048
  5. NEURONTIN [Concomitant]

REACTIONS (2)
  - BURNING SENSATION [None]
  - UNEVALUABLE EVENT [None]
